FAERS Safety Report 16218925 (Version 3)
Quarter: 2019Q3

REPORT INFORMATION
  Report Type: Spontaneous
  Country: JP (occurrence: JP)
  Receive Date: 20190419
  Receipt Date: 20190824
  Transmission Date: 20191004
  Serious: Yes (Death)
  Sender: FDA-Public Use
  Company Number: PHJP2019JP004581

PATIENT
  Age: 70 Year
  Sex: Male

DRUGS (1)
  1. CICLOSPORIN [Suspect]
     Active Substance: CYCLOSPORINE
     Indication: CUTANEOUS T-CELL LYMPHOMA STAGE III
     Dosage: 2.5 MG/KG, QD
     Route: 048

REACTIONS (7)
  - Skin mass [Fatal]
  - Lymphocytic infiltration [Fatal]
  - Condition aggravated [Fatal]
  - Cutaneous T-cell lymphoma [Fatal]
  - Subcutaneous abscess [Fatal]
  - Dermatitis exfoliative generalised [Fatal]
  - Product use in unapproved indication [Unknown]
